FAERS Safety Report 15491302 (Version 1)
Quarter: 2018Q4

REPORT INFORMATION
  Report Type: Spontaneous
  Country: ES (occurrence: ES)
  Receive Date: 20181012
  Receipt Date: 20181012
  Transmission Date: 20190205
  Serious: Yes (Hospitalization)
  Sender: FDA-Public Use
  Company Number: ES-UCBSA-2018045750

PATIENT
  Age: 48 Year
  Sex: Male

DRUGS (2)
  1. PRIMIDONA [Suspect]
     Active Substance: PRIMIDONE
     Indication: EPILEPSY
     Dosage: 125 MG, 3X/DAY (TID)
     Route: 048
     Dates: start: 20150114
  2. BRIVIACT [Suspect]
     Active Substance: BRIVARACETAM
     Indication: EPILEPSY
     Dosage: 100 MG, 2X/DAY (BID)
     Route: 048
     Dates: start: 20180625

REACTIONS (1)
  - Bicytopenia [Unknown]

NARRATIVE: CASE EVENT DATE: 201809
